FAERS Safety Report 26110371 (Version 3)
Quarter: 2025Q4

REPORT INFORMATION
  Report Type: Other
  Country: EU (occurrence: EU)
  Receive Date: 20251202
  Receipt Date: 20251218
  Transmission Date: 20260117
  Serious: Yes (Life-Threatening, Hospitalization, Other)
  Sender: STRIDES
  Company Number: EU-ASTELLAS-2025-AER-049134

PATIENT
  Age: 59 Year
  Sex: Male

DRUGS (20)
  1. VANCOMYCIN [Suspect]
     Active Substance: VANCOMYCIN
     Indication: Sepsis
     Dosage: UNK
     Route: 065
     Dates: start: 20250807, end: 20250822
  2. PADCEV [Suspect]
     Active Substance: ENFORTUMAB VEDOTIN-EJFV
     Indication: Transitional cell carcinoma metastatic
     Dosage: 1.25 MG/KG, C1D1 AND C1D8
     Route: 042
     Dates: start: 20250723, end: 20250730
  3. PADCEV [Suspect]
     Active Substance: ENFORTUMAB VEDOTIN-EJFV
     Indication: Transitional cell carcinoma metastatic
     Dosage: UNK
     Route: 065
     Dates: start: 20250922
  4. PADCEV [Suspect]
     Active Substance: ENFORTUMAB VEDOTIN-EJFV
     Dosage: REDUCED DOSE
     Route: 065
  5. PADCEV [Suspect]
     Active Substance: ENFORTUMAB VEDOTIN-EJFV
     Dosage: UNK
     Route: 065
  6. PADCEV [Suspect]
     Active Substance: ENFORTUMAB VEDOTIN-EJFV
     Dosage: REDUCED DOSE
     Route: 065
  7. PADCEV [Suspect]
     Active Substance: ENFORTUMAB VEDOTIN-EJFV
     Dosage: UNK
     Route: 065
  8. PADCEV [Suspect]
     Active Substance: ENFORTUMAB VEDOTIN-EJFV
     Dosage: REDUCED DOSE
     Route: 065
  9. PADCEV [Suspect]
     Active Substance: ENFORTUMAB VEDOTIN-EJFV
     Dosage: UNK
     Route: 065
  10. PADCEV [Suspect]
     Active Substance: ENFORTUMAB VEDOTIN-EJFV
     Dosage: REDUCED DOSE
     Route: 065
  11. PADCEV [Suspect]
     Active Substance: ENFORTUMAB VEDOTIN-EJFV
     Dosage: UNK
     Route: 065
  12. PADCEV [Suspect]
     Active Substance: ENFORTUMAB VEDOTIN-EJFV
     Dosage: C3D1, 15% OF THE DOSE (17 MG) (REDUCED DOSE)
     Route: 042
     Dates: start: 20251013
  13. PADCEV [Suspect]
     Active Substance: ENFORTUMAB VEDOTIN-EJFV
     Dosage: C3D8
     Route: 042
     Dates: start: 20251020
  14. PADCEV [Suspect]
     Active Substance: ENFORTUMAB VEDOTIN-EJFV
     Dosage: C4D1, 50 % OF THE DOSE (54 MG),
     Route: 042
     Dates: start: 20251104
  15. PADCEV [Suspect]
     Active Substance: ENFORTUMAB VEDOTIN-EJFV
     Dosage: C4D8
     Route: 042
     Dates: start: 20251112
  16. AMIKACIN [Suspect]
     Active Substance: AMIKACIN
     Indication: Sepsis
     Dosage: UNK
     Route: 065
     Dates: start: 20250807, end: 20250822
  17. PIPERACILLIN SODIUM\TAZOBACTAM SODIUM [Suspect]
     Active Substance: PIPERACILLIN SODIUM\TAZOBACTAM SODIUM
     Indication: Sepsis
     Dosage: UNK
     Route: 065
     Dates: start: 20250807, end: 20250822
  18. PIPERACILLIN SODIUM\TAZOBACTAM SODIUM [Suspect]
     Active Substance: PIPERACILLIN SODIUM\TAZOBACTAM SODIUM
     Indication: Sepsis
  19. PEMBROLIZUMAB [Concomitant]
     Active Substance: PEMBROLIZUMAB
     Indication: Transitional cell carcinoma metastatic
     Dosage: C1D1
     Route: 065
  20. PEMBROLIZUMAB [Concomitant]
     Active Substance: PEMBROLIZUMAB
     Indication: Transitional cell carcinoma metastatic
     Dosage: 200 MG, EVERY 3 WEEKS
     Route: 065
     Dates: start: 20250922

REACTIONS (7)
  - Toxic skin eruption [Recovered/Resolved]
  - Toxic skin eruption [Recovered/Resolved]
  - Intestinal obstruction [Recovered/Resolved]
  - Intestinal perforation [Recovered/Resolved]
  - Septic shock [Recovered/Resolved]
  - Sepsis [Recovered/Resolved]
  - Tumour pseudoprogression [Not Recovered/Not Resolved]

NARRATIVE: CASE EVENT DATE: 20250729
